FAERS Safety Report 5719961-3 (Version None)
Quarter: 2008Q2

REPORT INFORMATION
  Report Type: 
  Country: None (occurrence: None)
  Receive Date: 20080425
  Receipt Date: 20080425
  Transmission Date: 20081010
  Serious: No
  Sender: FDA-Public Use
  Company Number: None

PATIENT
  Sex: Female
  Weight: 88.45 kg

DRUGS (2)
  1. TEMOZOLOMIDE [Suspect]
     Dosage: 6150 MG
  2. DEXAMETHASONE [Concomitant]

REACTIONS (1)
  - PLATELET COUNT DECREASED [None]
